FAERS Safety Report 21757629 (Version 1)
Quarter: 2022Q4

REPORT INFORMATION
  Report Type: Spontaneous
  Country: GB (occurrence: GB)
  Receive Date: 20221221
  Receipt Date: 20221221
  Transmission Date: 20230113
  Serious: Yes (Death, Other)
  Sender: FDA-Public Use
  Company Number: GB-MHRA-ADR 27519275

PATIENT
  Age: 57 Year
  Sex: Female

DRUGS (1)
  1. DULOXETINE [Suspect]
     Active Substance: DULOXETINE
     Indication: Neuralgia
     Dosage: 30 MILLIGRAM
     Route: 065
     Dates: start: 20211006

REACTIONS (5)
  - Completed suicide [Fatal]
  - Abdominal pain [Not Recovered/Not Resolved]
  - Pain in extremity [Not Recovered/Not Resolved]
  - Condition aggravated [Not Recovered/Not Resolved]
  - Dissociation [Not Recovered/Not Resolved]

NARRATIVE: CASE EVENT DATE: 20211101
